FAERS Safety Report 14849695 (Version 1)
Quarter: 2018Q2

REPORT INFORMATION
  Report Type: Report from Study
  Country: DE (occurrence: DE)
  Receive Date: 20180504
  Receipt Date: 20180504
  Transmission Date: 20180711
  Serious: Yes (Hospitalization, Other)
  Sender: FDA-Public Use
  Company Number: DE-PFIZER INC-2018171612

PATIENT
  Age: 71 Year
  Sex: Female

DRUGS (8)
  1. RAMIPRIL. [Concomitant]
     Active Substance: RAMIPRIL
  2. IBUPROFEN. [Suspect]
     Active Substance: IBUPROFEN
  3. L-THYROXIN [Concomitant]
     Active Substance: LEVOTHYROXINE SODIUM
  4. NEBIVOLOL. [Concomitant]
     Active Substance: NEBIVOLOL
  5. LERCANIDIPINE [Concomitant]
     Active Substance: LERCANIDIPINE
  6. HYDROCHLOROTHIAZID [Concomitant]
     Active Substance: HYDROCHLOROTHIAZIDE
  7. FLUPIRTINE [Concomitant]
     Active Substance: FLUPIRTINE
     Indication: BACK PAIN
  8. ACETYLSALICYLIC ACID [Concomitant]
     Active Substance: ASPIRIN

REACTIONS (1)
  - Drug-induced liver injury [Recovered/Resolved]
